FAERS Safety Report 5931515-2 (Version None)
Quarter: 2008Q4

REPORT INFORMATION
  Report Type: 
  Country: None (occurrence: None)
  Receive Date: 20081027
  Receipt Date: 20081017
  Transmission Date: 20090506
  Serious: Yes (Hospitalization)
  Sender: FDA-Public Use
  Company Number: A0753573A

PATIENT
  Age: 57 Year
  Sex: Female
  Weight: 106.8 kg

DRUGS (2)
  1. AVANDIA [Suspect]
     Dosage: 4MG TWICE PER DAY
     Route: 048
     Dates: start: 20020101, end: 20040101
  2. AVANDAMET [Suspect]
     Dosage: 4MG PER DAY
     Route: 048
     Dates: start: 20040101, end: 20060101

REACTIONS (4)
  - CARDIOVASCULAR DISORDER [None]
  - CEREBROVASCULAR ACCIDENT [None]
  - CORONARY ARTERY DISEASE [None]
  - MYOCARDIAL INFARCTION [None]
